FAERS Safety Report 4407909-3 (Version None)
Quarter: 2004Q3

REPORT INFORMATION
  Report Type: 
  Country: None (occurrence: None)
  Receive Date: 20040721
  Receipt Date: 20040702
  Transmission Date: 20050211
  Serious: Yes (Hospitalization)
  Sender: FDA-Public Use
  Company Number: DE_040713891

PATIENT
  Age: 79 Year
  Sex: Female
  Weight: 71 kg

DRUGS (6)
  1. HUMALOG [Suspect]
     Indication: DIABETES MELLITUS NON-INSULIN-DEPENDENT
     Dosage: 48 IU DAY
     Dates: start: 20030601
  2. GLIMEPIRIDE [Concomitant]
  3. METOPROLOL SUCCINATE [Concomitant]
  4. DIGITOXIN TAB [Concomitant]
  5. ISCOVER (CLOPIDOGREL SULFATE) [Concomitant]
  6. TORSEMIDE [Concomitant]

REACTIONS (4)
  - COMA [None]
  - DRUG INTERACTION [None]
  - HYPERHIDROSIS [None]
  - SHOCK HYPOGLYCAEMIC [None]
